FAERS Safety Report 4539869-9 (Version None)
Quarter: 2004Q4

REPORT INFORMATION
  Report Type: 
  Country: None (occurrence: None)
  Receive Date: 20041223
  Receipt Date: 20041210
  Transmission Date: 20050328
  Serious: Yes (Hospitalization)
  Sender: FDA-Public Use
  Company Number: 2004095793

PATIENT
  Age: 54 Year
  Sex: Male

DRUGS (1)
  1. AZITHROMYCIN [Suspect]
     Indication: PERIODONTITIS
     Dosage: 500 MG (1 IN 1 D), ORAL
     Route: 048
     Dates: start: 20040907, end: 20040907

REACTIONS (1)
  - COLITIS ULCERATIVE [None]
